FAERS Safety Report 4975784-4 (Version None)
Quarter: 2006Q2

REPORT INFORMATION
  Report Type: 
  Country: None (occurrence: None)
  Receive Date: 20060418
  Receipt Date: 20060310
  Transmission Date: 20061013
  Serious: Yes (Other)
  Sender: FDA-Public Use
  Company Number: DE-BOEHRINGER INGELHEIM PHARMACEUTICALS, INC.-2006-DE-01342DE

PATIENT
  Age: 80 Year
  Sex: Male

DRUGS (4)
  1. MICARDIS [Suspect]
     Indication: HYPERTENSION
  2. CATAPRESAN [Suspect]
     Indication: HYPERTENSION
  3. ALLOPURINOL [Concomitant]
  4. CITALOPRAM [Concomitant]

REACTIONS (1)
  - HAEMOGLOBIN DECREASED [None]
